FAERS Safety Report 17460778 (Version 1)
Quarter: 2020Q1

REPORT INFORMATION
  Report Type: Spontaneous
  Country: US (occurrence: US)
  Receive Date: 20200225
  Receipt Date: 20200225
  Transmission Date: 20200409
  Serious: Yes (Disabling)
  Sender: FDA-Public Use
  Company Number: None

PATIENT
  Age: 48 Year
  Sex: Female
  Weight: 76.5 kg

DRUGS (12)
  1. HYDROXYZINE [Concomitant]
     Active Substance: HYDROXYZINE HYDROCHLORIDE
  2. L-LYSINE [Concomitant]
     Active Substance: LYSINE
  3. ONE A DAY MULTIVITAMIN FOR WOMEN [Concomitant]
  4. CIPRO [Suspect]
     Active Substance: CIPROFLOXACIN HYDROCHLORIDE
     Indication: URINARY TRACT INFECTION
  5. STIOLOTO RESPIMAT [Concomitant]
  6. TYLENOL [Concomitant]
     Active Substance: ACETAMINOPHEN
  7. BUPROPRION [Concomitant]
     Active Substance: BUPROPION
  8. MELOXICAM. [Concomitant]
     Active Substance: MELOXICAM
  9. POTASSIUM [Concomitant]
     Active Substance: POTASSIUM
  10. OMEPRAZOLE. [Concomitant]
     Active Substance: OMEPRAZOLE
  11. FLEXERIL [Concomitant]
     Active Substance: CYCLOBENZAPRINE HYDROCHLORIDE
  12. PROBIOTICS [Concomitant]
     Active Substance: PROBIOTICS NOS

REACTIONS (4)
  - Tendonitis [None]
  - Middle insomnia [None]
  - Muscle spasms [None]
  - Muscle disorder [None]

NARRATIVE: CASE EVENT DATE: 20191211
